FAERS Safety Report 5762955-2 (Version None)
Quarter: 2008Q2

REPORT INFORMATION
  Report Type: 
  Country: None (occurrence: None)
  Receive Date: 20080609
  Receipt Date: 20080527
  Transmission Date: 20081010
  Serious: Yes (Death, Hospitalization)
  Sender: FDA-Public Use
  Company Number: RO-ROCHE-566773

PATIENT
  Sex: Male

DRUGS (2)
  1. PEGASYS [Suspect]
     Dosage: FORM: VIALS
     Route: 042
     Dates: start: 20071221, end: 20080505
  2. RIBAVIRIN [Concomitant]
     Route: 048
     Dates: start: 20071221, end: 20080505

REACTIONS (4)
  - CACHEXIA [None]
  - HYPERCATABOLISM [None]
  - MAJOR DEPRESSION [None]
  - STUPOR [None]
